FAERS Safety Report 14728897 (Version 2)
Quarter: 2020Q3

REPORT INFORMATION
  Report Type: Spontaneous
  Country: ES (occurrence: ES)
  Receive Date: 20180406
  Receipt Date: 20180731
  Transmission Date: 20201104
  Serious: Yes (Hospitalization)
  Sender: FDA-Public Use
  Company Number: ES-TEVA-2018-ES-876565

PATIENT
  Age: 61 Year
  Sex: Male

DRUGS (25)
  1. ETOPOSIDE. [Suspect]
     Active Substance: ETOPOSIDE
     Dosage: 100 MG/M2 EVERY 3 WEEKS
     Route: 065
     Dates: start: 20170710, end: 20170710
  2. ETOPOSIDE. [Suspect]
     Active Substance: ETOPOSIDE
     Dosage: 100 MG/M2 EVERY 3 WEEKS
     Route: 065
     Dates: start: 20170808, end: 20170808
  3. TREMELIMUMAB. [Suspect]
     Active Substance: TREMELIMUMAB
     Indication: SMALL CELL LUNG CANCER
     Dosage: 75 MG EVERY FOUR WEEKS
     Route: 042
     Dates: start: 20170807, end: 20170807
  4. ETOPOSIDE. [Suspect]
     Active Substance: ETOPOSIDE
     Dosage: 100 MG/M2 EVERY 3 WEEKS
     Route: 065
     Dates: start: 20170807, end: 20170807
  5. CISPLATIN. [Suspect]
     Active Substance: CISPLATIN
     Dosage: 75 MG/M2, UNK
     Route: 065
     Dates: start: 20170807, end: 20170807
  6. CISPLATIN. [Suspect]
     Active Substance: CISPLATIN
     Dosage: 75 MG/M2, UNK
     Route: 065
     Dates: start: 20170614, end: 20170614
  7. DURVALUMAB. [Suspect]
     Active Substance: DURVALUMAB
     Indication: SMALL CELL LUNG CANCER
     Dosage: 1500 MG EVERY 4 WEEKS
     Route: 042
     Dates: start: 20171025, end: 20171025
  8. DURVALUMAB. [Suspect]
     Active Substance: DURVALUMAB
     Dosage: 1500 MG EVERY 4 WEEKS
     Route: 042
     Dates: start: 20170614, end: 20170614
  9. ETOPOSIDE. [Suspect]
     Active Substance: ETOPOSIDE
     Dosage: 100 MG/M2 EVERY 3 WEEKS
     Route: 065
     Dates: start: 20170901, end: 20170901
  10. ETOPOSIDE. [Suspect]
     Active Substance: ETOPOSIDE
     Dosage: 100 MG/M2 EVERY 3 WEEKS
     Route: 065
     Dates: start: 20170831, end: 20170831
  11. ETOPOSIDE. [Suspect]
     Active Substance: ETOPOSIDE
     Dosage: 100 MG/M2 EVERY 3 WEEKS
     Route: 065
     Dates: start: 20170616, end: 20170616
  12. ETOPOSIDE. [Suspect]
     Active Substance: ETOPOSIDE
     Dosage: 100 MG/M2 EVERY 3 WEEKS
     Route: 065
     Dates: start: 20170615, end: 20170615
  13. CISPLATIN. [Suspect]
     Active Substance: CISPLATIN
     Dosage: 75 MG/M2, UNK
     Route: 065
     Dates: start: 20170831, end: 20170831
  14. ETOPOSIDE. [Suspect]
     Active Substance: ETOPOSIDE
     Dosage: 100 MG/M2 EVERY 3 WEEKS
     Route: 065
     Dates: start: 20170809, end: 20170809
  15. CISPLATIN. [Suspect]
     Active Substance: CISPLATIN
     Indication: SMALL CELL LUNG CANCER
     Dosage: 75 MG/M2, UNK
     Route: 065
     Dates: start: 20170807, end: 20170807
  16. TREMELIMUMAB. [Suspect]
     Active Substance: TREMELIMUMAB
     Dosage: 75 MG EVERY FOUR WEEKS
     Route: 042
     Dates: start: 20171025, end: 20171025
  17. ETOPOSIDE. [Suspect]
     Active Substance: ETOPOSIDE
     Dosage: 100 MG/M2 EVERY 3 WEEKS
     Route: 065
     Dates: start: 20170711, end: 20170711
  18. ETOPOSIDE. [Suspect]
     Active Substance: ETOPOSIDE
     Indication: SMALL CELL LUNG CANCER
     Dosage: 100 MG/M2 EVERY 3 WEEKS
     Route: 065
     Dates: start: 20170712, end: 20170712
  19. TREMELIMUMAB. [Suspect]
     Active Substance: TREMELIMUMAB
     Dosage: 75 MG EVERY FOUR WEEKS
     Route: 042
     Dates: start: 20170614, end: 20170614
  20. DURVALUMAB. [Suspect]
     Active Substance: DURVALUMAB
     Dosage: 1500 MG EVERY 4 WEEKS
     Route: 042
     Dates: start: 20170807, end: 20170820
  21. DURVALUMAB. [Suspect]
     Active Substance: DURVALUMAB
     Dosage: 1500 MG EVERY 4 WEEKS
     Route: 042
     Dates: start: 20170927, end: 20170927
  22. ETOPOSIDE. [Suspect]
     Active Substance: ETOPOSIDE
     Dosage: 100 MG/M2 EVERY 3 WEEKS
     Route: 065
     Dates: start: 20170902, end: 20170902
  23. ETOPOSIDE. [Suspect]
     Active Substance: ETOPOSIDE
     Dosage: 100 MG/M2 EVERY 3 WEEKS
     Route: 065
     Dates: start: 20170614, end: 20170614
  24. CISPLATIN. [Suspect]
     Active Substance: CISPLATIN
     Dosage: 75 MG/M2, UNK
     Route: 065
     Dates: start: 20170710, end: 20170710
  25. DURVALUMAB. [Suspect]
     Active Substance: DURVALUMAB
     Dosage: 1500 MG EVERY 4 WEEKS
     Route: 042
     Dates: start: 20170927, end: 20170927

REACTIONS (2)
  - Neutropenia [Recovered/Resolved]
  - Diarrhoea [Recovered/Resolved]

NARRATIVE: CASE EVENT DATE: 20170627
